FAERS Safety Report 11509838 (Version 1)
Quarter: 2015Q3

REPORT INFORMATION
  Report Type: Spontaneous
  Country: US (occurrence: US)
  Receive Date: 20150915
  Receipt Date: 20150915
  Transmission Date: 20151125
  Serious: No
  Sender: FDA-Public Use
  Company Number: US-JNJFOC-20150100436

PATIENT
  Age: 82 Year
  Sex: Male
  Weight: 79.38 kg

DRUGS (3)
  1. UNSPECIFIED CHOLESTEROL MEDICATION [Concomitant]
     Indication: BLOOD CHOLESTEROL INCREASED
     Route: 065
  2. UNKNOWN ANTIHYPERTENSIVE DRUG [Concomitant]
     Indication: HYPERTENSION
     Route: 065
  3. MOTRIN IB [Suspect]
     Active Substance: IBUPROFEN
     Indication: ARTHRITIS
     Dosage: BY CAPFULL
     Route: 048

REACTIONS (3)
  - Dysgeusia [Unknown]
  - Wrong technique in product usage process [Unknown]
  - Choking [Recovered/Resolved]
